FAERS Safety Report 4554578-8 (Version None)
Quarter: 2005Q1

REPORT INFORMATION
  Report Type: 
  Country: None (occurrence: None)
  Receive Date: 20050118
  Receipt Date: 20041115
  Transmission Date: 20050727
  Serious: Yes (Hospitalization, Disabling)
  Sender: FDA-Public Use
  Company Number: US-MERCK-0411USA02575

PATIENT
  Age: 62 Year
  Sex: Female

DRUGS (3)
  1. MEVACOR [Suspect]
     Indication: BLOOD CHOLESTEROL INCREASED
     Route: 048
     Dates: start: 20040601, end: 20040601
  2. NEXIUM [Concomitant]
     Route: 065
  3. XANAX [Concomitant]
     Route: 065

REACTIONS (15)
  - ARTHRALGIA [None]
  - ASTHENIA [None]
  - BALANCE DISORDER [None]
  - BODY TEMPERATURE INCREASED [None]
  - GROIN PAIN [None]
  - INFLUENZA LIKE ILLNESS [None]
  - JOINT STIFFNESS [None]
  - MOVEMENT DISORDER [None]
  - MYALGIA [None]
  - PAIN IN EXTREMITY [None]
  - PARALYSIS [None]
  - POLYMYALGIA RHEUMATICA [None]
  - PYREXIA [None]
  - RED BLOOD CELL SEDIMENTATION RATE INCREASED [None]
  - TRISMUS [None]
